FAERS Safety Report 21617485 (Version 4)
Quarter: 2022Q4

REPORT INFORMATION
  Report Type: Spontaneous
  Country: CA (occurrence: CA)
  Receive Date: 20221119
  Receipt Date: 20221210
  Transmission Date: 20230113
  Serious: Yes (Hospitalization)
  Sender: FDA-Public Use
  Company Number: CA-CELLTRION INC.-2022CA019268

PATIENT

DRUGS (14)
  1. INFLECTRA [Suspect]
     Active Substance: INFLIXIMAB-DYYB
     Indication: Crohn^s disease
     Dosage: 300 MG,Q 0, 2, 6 WEEKS, THEN EVERY 8 WEEKS
     Route: 042
     Dates: start: 20190503, end: 20190614
  2. INFLECTRA [Suspect]
     Active Substance: INFLIXIMAB-DYYB
     Dosage: 300 MG, RE-INDUCTION: Q 0, 2, 6 WEEKS, THEN EVERY 8 WEEKS
     Route: 042
     Dates: start: 20190919, end: 20201004
  3. INFLECTRA [Suspect]
     Active Substance: INFLIXIMAB-DYYB
     Dosage: 300 MG, EVERY 6 WEEKS
     Route: 042
     Dates: start: 20201014
  4. INFLECTRA [Suspect]
     Active Substance: INFLIXIMAB-DYYB
     Dosage: 300 MG, EVERY 6 WEEKS
     Route: 042
     Dates: start: 20220816
  5. INFLECTRA [Suspect]
     Active Substance: INFLIXIMAB-DYYB
     Dosage: 300 MG, EVERY 6 WEEKS(COMPLETED AT HOSPITAL)
     Route: 042
     Dates: start: 202209
  6. INFLECTRA [Suspect]
     Active Substance: INFLIXIMAB-DYYB
     Dosage: 300 MG, EVERY 6 WEEKS
     Route: 042
     Dates: start: 20221129
  7. INFLECTRA [Suspect]
     Active Substance: INFLIXIMAB-DYYB
     Dosage: 300 MG, EVERY 6 WEEKS
     Route: 042
     Dates: start: 20221129
  8. CLONAZEPAM [Concomitant]
     Active Substance: CLONAZEPAM
     Dosage: 1 MG, AS NEEDED
     Route: 048
  9. IRON [Concomitant]
     Active Substance: IRON
     Dosage: UNK UNK, 1X/DAY
     Route: 048
  10. IRON [Concomitant]
     Active Substance: IRON
     Dosage: 1 DF, 1X/DAY (1TAB)
     Route: 048
  11. LITHIUM [Concomitant]
     Active Substance: LITHIUM
     Dosage: UNK UNK, 1X/DAY
     Route: 048
  12. LITHIUM [Concomitant]
     Active Substance: LITHIUM
     Dosage: 1 DF, 1X/DAY (5TABS)
     Route: 048
  13. TESTOSTERONE [Concomitant]
     Active Substance: TESTOSTERONE
     Dosage: UNK UNK, 1X/DAY
     Route: 058
  14. TESTOSTERONE [Concomitant]
     Active Substance: TESTOSTERONE
     Dosage: 0.3 ML, WEEKLY
     Route: 058

REACTIONS (3)
  - Mental disorder [Recovered/Resolved]
  - Mania [Unknown]
  - Off label use [Unknown]

NARRATIVE: CASE EVENT DATE: 20220101
